FAERS Safety Report 12381276 (Version 1)
Quarter: 2016Q2

REPORT INFORMATION
  Report Type: Spontaneous
  Country: JP (occurrence: JP)
  Receive Date: 20160518
  Receipt Date: 20160518
  Transmission Date: 20160815
  Serious: Yes (Other)
  Sender: FDA-Public Use
  Company Number: JP-SUN PHARMACEUTICAL INDUSTRIES LTD-2016RR-115086

PATIENT
  Age: 78 Year
  Sex: Male
  Weight: 62.7 kg

DRUGS (10)
  1. CISPLATIN. [Suspect]
     Active Substance: CISPLATIN
     Indication: PLEURAL MESOTHELIOMA MALIGNANT
     Dosage: 6 COURSES OF 60 MG/M2 EVERY 3 TO 4 WEEKS
     Route: 065
     Dates: start: 20070315
  2. PEMETREXED [Suspect]
     Active Substance: PEMETREXED
     Indication: PLEURAL MESOTHELIOMA MALIGNANT
     Dosage: 500 MG/M2 EVERY 3 TO 4 WEEKS
     Route: 065
     Dates: start: 20070315
  3. TS-1 [Suspect]
     Active Substance: GIMERACIL\OTERACIL\TEGAFUR
     Indication: PLEURAL MESOTHELIOMA MALIGNANT
     Dosage: UNK
     Route: 065
     Dates: start: 20071107
  4. GEMCITABINE [Suspect]
     Active Substance: GEMCITABINE\GEMCITABINE HYDROCHLORIDE
     Indication: PLEURAL MESOTHELIOMA MALIGNANT
     Dosage: 1000 MG/M2, ON DAY 1, 8, 15, EVERY 4 WEEKS (2 COURSES)
     Route: 065
     Dates: start: 20080417
  5. CISPLATIN. [Suspect]
     Active Substance: CISPLATIN
     Indication: PLEURAL MESOTHELIOMA MALIGNANT
     Dosage: 60 MG/M2
     Route: 065
     Dates: start: 20080825
  6. VINORELBINE [Suspect]
     Active Substance: VINORELBINE\VINORELBINE TARTRATE
     Indication: PLEURAL MESOTHELIOMA MALIGNANT
     Dosage: 25 MG/M2 IN DAY 1, 8, 15, EVERY 4 WEEKS (2 COURSES)
     Route: 065
     Dates: start: 20080221
  7. VITAMIN B12 [Concomitant]
     Active Substance: CYANOCOBALAMIN
     Indication: PRODUCT USED FOR UNKNOWN INDICATION
     Dosage: 1.0MG/ 9 WEEKS
     Route: 065
  8. CISPLATIN. [Suspect]
     Active Substance: CISPLATIN
     Indication: PLEURAL MESOTHELIOMA MALIGNANT
     Dosage: 45 MG/M2
     Route: 065
  9. FOLIC ACID. [Concomitant]
     Active Substance: FOLIC ACID
     Indication: PRODUCT USED FOR UNKNOWN INDICATION
     Dosage: 0.5 MG, DAILY
     Route: 065
  10. PEMETREXED [Suspect]
     Active Substance: PEMETREXED
     Indication: PLEURAL MESOTHELIOMA MALIGNANT
     Dosage: 500 MG/M2
     Route: 065
     Dates: start: 20080825

REACTIONS (13)
  - Drug effect decreased [Unknown]
  - Disease progression [Not Recovered/Not Resolved]
  - Oral disorder [Unknown]
  - Blood creatinine increased [Unknown]
  - Decreased appetite [Unknown]
  - Leukopenia [Unknown]
  - Hiccups [Unknown]
  - Drug ineffective [Unknown]
  - Nausea [Unknown]
  - Vomiting [Unknown]
  - Platelet count decreased [Unknown]
  - Neutropenia [Unknown]
  - Enteritis [Unknown]
